FAERS Safety Report 5885992-6 (Version None)
Quarter: 2008Q3

REPORT INFORMATION
  Report Type: 
  Country: None (occurrence: None)
  Receive Date: 20080917
  Receipt Date: 20080908
  Transmission Date: 20090109
  Serious: Yes (Other)
  Sender: FDA-Public Use
  Company Number: US-ROCHE-585232

PATIENT
  Age: 51 Year
  Sex: Male

DRUGS (6)
  1. GANCICLOVIR [Suspect]
     Indication: ANTI-INFECTIVE THERAPY
     Route: 065
  2. MYCOPHENOLATE MOFETIL [Suspect]
     Indication: RENAL TRANSPLANT
     Route: 065
  3. VALGANCICLOVIR HCL [Suspect]
     Indication: RENAL TRANSPLANT
     Route: 065
  4. TACROLIMUS [Suspect]
     Indication: IMMUNOSUPPRESSION
     Route: 065
  5. PREDNISONE TAB [Suspect]
     Indication: IMMUNOSUPPRESSION
     Route: 065
  6. THYMOGLOBULIN [Concomitant]
     Dosage: IN THREE DOSES.

REACTIONS (3)
  - CYTOMEGALOVIRUS INFECTION [None]
  - FOCAL SEGMENTAL GLOMERULOSCLEROSIS [None]
  - TRANSPLANT REJECTION [None]
